FAERS Safety Report 20472918 (Version 3)
Quarter: 2022Q3

REPORT INFORMATION
  Report Type: Spontaneous
  Country: US (occurrence: US)
  Receive Date: 20220215
  Receipt Date: 20220805
  Transmission Date: 20221026
  Serious: Yes (Other)
  Sender: FDA-Public Use
  Company Number: US-GILEAD-2022-0569202

PATIENT
  Sex: Male
  Weight: 73.469 kg

DRUGS (28)
  1. ATRIPLA [Suspect]
     Active Substance: EFAVIRENZ\EMTRICITABINE\TENOFOVIR DISOPROXIL FUMARATE
     Indication: HIV infection
     Dosage: UNK
     Route: 048
     Dates: start: 2004
  2. ATRIPLA [Suspect]
     Active Substance: EFAVIRENZ\EMTRICITABINE\TENOFOVIR DISOPROXIL FUMARATE
     Dosage: UNK
     Route: 048
     Dates: start: 2009, end: 201708
  3. TRUVADA [Suspect]
     Active Substance: EMTRICITABINE\TENOFOVIR DISOPROXIL FUMARATE
     Indication: HIV infection
     Dosage: UNK
     Route: 048
     Dates: start: 2004, end: 2009
  4. GENVOYA [Concomitant]
     Active Substance: COBICISTAT\ELVITEGRAVIR\EMTRICITABINE\TENOFOVIR ALAFENAMIDE FUMARATE
  5. SUSTIVA [Concomitant]
     Active Substance: EFAVIRENZ
  6. ATORVASTATIN [Concomitant]
     Active Substance: ATORVASTATIN
  7. VENTOLIN HFA [Concomitant]
     Active Substance: ALBUTEROL SULFATE
  8. DEXAMETHASONE [Concomitant]
     Active Substance: DEXAMETHASONE
  9. AZITHROMYCIN [Concomitant]
     Active Substance: AZITHROMYCIN
  10. BENZONATATE [Concomitant]
     Active Substance: BENZONATATE
  11. MECLIZINE HYDROCHLORIDE [Concomitant]
     Active Substance: MECLIZINE HYDROCHLORIDE
  12. LIVALO [Concomitant]
     Active Substance: PITAVASTATIN CALCIUM
  13. LIDOCAINE HYDROCHLORIDE(SOLVENT) [Concomitant]
  14. DOXYCYCLINE [Concomitant]
     Active Substance: DOXYCYCLINE
  15. PREDNISONE [Concomitant]
     Active Substance: PREDNISONE
  16. PREVIDENT [Concomitant]
     Active Substance: SODIUM FLUORIDE
  17. AMOXICILLIN [Concomitant]
     Active Substance: AMOXICILLIN
  18. IBUPROFEN [Concomitant]
     Active Substance: IBUPROFEN
  19. MOMETASONE [Concomitant]
     Active Substance: MOMETASONE
  20. CHLORHEXIDINE [Concomitant]
     Active Substance: CHLORHEXIDINE
  21. SF 5000 PLUS [Concomitant]
     Active Substance: SODIUM FLUORIDE
  22. TRAMADOL [Concomitant]
     Active Substance: TRAMADOL
  23. HYDROCODONE [Concomitant]
     Active Substance: HYDROCODONE
  24. LINDANE [Concomitant]
     Active Substance: LINDANE
  25. ZOLPIDEM [Concomitant]
     Active Substance: ZOLPIDEM TARTRATE
  26. VITAMIN D NOS [Concomitant]
     Active Substance: VITAMIN D NOS
  27. VITAMINS NOS [Concomitant]
     Active Substance: VITAMINS
  28. ASPIRIN [Concomitant]
     Active Substance: ASPIRIN

REACTIONS (13)
  - Renal impairment [Unknown]
  - Chronic kidney disease [Not Recovered/Not Resolved]
  - Renal injury [Unknown]
  - Glomerular filtration rate abnormal [Unknown]
  - Pain [Not Recovered/Not Resolved]
  - Emotional distress [Not Recovered/Not Resolved]
  - Anxiety [Not Recovered/Not Resolved]
  - Anhedonia [Not Recovered/Not Resolved]
  - Hypertension [Not Recovered/Not Resolved]
  - Haematuria [Unknown]
  - Muscle spasms [Unknown]
  - General physical health deterioration [Not Recovered/Not Resolved]
  - Back pain [Unknown]

NARRATIVE: CASE EVENT DATE: 20160101
